FAERS Safety Report 21036086 (Version 1)
Quarter: 2022Q3

REPORT INFORMATION
  Report Type: Spontaneous
  Country: US (occurrence: US)
  Receive Date: 20220701
  Receipt Date: 20220701
  Transmission Date: 20221027
  Serious: No
  Sender: FDA-Public Use
  Company Number: US-THERAPEUTICSMD-2021TMD02947

PATIENT
  Age: 84 Year
  Sex: Female
  Weight: 57.596 kg

DRUGS (5)
  1. IMVEXXY [Suspect]
     Active Substance: ESTRADIOL
     Indication: Hormone level abnormal
     Dosage: 10 ?G, 2X/WEEK
     Route: 067
     Dates: start: 20211201, end: 20211201
  2. FAMOTIDINE [Concomitant]
     Active Substance: FAMOTIDINE
     Dosage: 20 MG, 1X/DAY
  3. DICLOFENAC SODIUM EC (ENTERIC COATED) [Concomitant]
     Dosage: 150 MG, AS NEEDED IN THE EVENING
  4. VITAMIN D3 [Concomitant]
     Active Substance: CHOLECALCIFEROL
  5. FIBER WELL [Concomitant]

REACTIONS (3)
  - Muscle spasms [Recovering/Resolving]
  - Pruritus [Recovering/Resolving]
  - Vulvovaginal burning sensation [Recovering/Resolving]

NARRATIVE: CASE EVENT DATE: 20211201
